FAERS Safety Report 10868182 (Version 1)
Quarter: 2015Q1

REPORT INFORMATION
  Report Type: Spontaneous
  Country: JP (occurrence: JP)
  Receive Date: 20150225
  Receipt Date: 20150225
  Transmission Date: 20150721
  Serious: Yes (Hospitalization, Other)
  Sender: FDA-Public Use
  Company Number: JP-GLAXOSMITHKLINE-B0909324A

PATIENT
  Age: 30 Year
  Sex: Male

DRUGS (20)
  1. TRUVADA [Suspect]
     Active Substance: EMTRICITABINE\TENOFOVIR DISOPROXIL FUMARATE
     Indication: HIV INFECTION
     Route: 048
     Dates: start: 20111111, end: 20111116
  2. ISENTRESS [Concomitant]
     Active Substance: RALTEGRAVIR POTASSIUM
     Indication: HIV INFECTION
     Route: 048
     Dates: start: 20120130
  3. SAMITREL [Concomitant]
     Active Substance: ATOVAQUONE
     Indication: ANTIFUNGAL PROPHYLAXIS
     Dosage: 1500 MG, QD
     Route: 048
     Dates: start: 20120618, end: 20130630
  4. GRAN [Concomitant]
     Active Substance: FILGRASTIM
     Indication: WHITE BLOOD CELL COUNT DECREASED
     Route: 051
     Dates: start: 20120319, end: 20120514
  5. SAWACILLIN [Concomitant]
     Active Substance: AMOXICILLIN
     Indication: SYPHILIS
     Dosage: 2 G, BID
     Dates: start: 20130708, end: 20130721
  6. VALIXA [Suspect]
     Active Substance: VALGANCICLOVIR
     Route: 048
     Dates: start: 20111224, end: 20120126
  7. VALIXA [Suspect]
     Active Substance: VALGANCICLOVIR
     Route: 048
     Dates: start: 20120216, end: 20120507
  8. VALIXA [Suspect]
     Active Substance: VALGANCICLOVIR
     Dosage: 450 MG, BID
     Route: 048
     Dates: start: 20120529, end: 20130304
  9. DOXIL [Concomitant]
     Active Substance: DOXORUBICIN HYDROCHLORIDE
     Indication: KAPOSI^S SARCOMA
     Route: 042
     Dates: start: 20120131, end: 20120131
  10. BENECID [Concomitant]
     Active Substance: PROBENECID
     Indication: SYPHILIS
     Dosage: 500 MG, BID
     Dates: start: 20130708, end: 20130721
  11. DOXIL [Concomitant]
     Active Substance: DOXORUBICIN HYDROCHLORIDE
     Route: 042
     Dates: start: 20120221, end: 20120221
  12. ABACAVIR SULFATE + LAMIVUDINE [Suspect]
     Active Substance: ABACAVIR SULFATE\LAMIVUDINE
     Indication: HIV INFECTION
     Route: 048
     Dates: start: 20111117
  13. ZITHROMAC [Concomitant]
     Active Substance: AZITHROMYCIN DIHYDRATE
     Indication: PROPHYLAXIS
     Route: 065
     Dates: start: 20111026, end: 20121203
  14. VALIXA [Suspect]
     Active Substance: VALGANCICLOVIR
     Indication: CYTOMEGALOVIRUS INFECTION
     Route: 048
     Dates: start: 20111206, end: 20111223
  15. PENTAMIDINE ISETIONATE [Concomitant]
     Active Substance: PENTAMIDINE ISETHIONATE
     Indication: ANTIFUNGAL PROPHYLAXIS
     Route: 051
     Dates: start: 20111117, end: 20111121
  16. BAKTAR [Suspect]
     Active Substance: SULFAMETHOXAZOLE\TRIMETHOPRIM
     Indication: PNEUMOCYSTIS JIROVECII PNEUMONIA
     Dosage: 3 DF, TID
     Route: 048
     Dates: start: 20111006, end: 20111027
  17. BAKTAR [Suspect]
     Active Substance: SULFAMETHOXAZOLE\TRIMETHOPRIM
     Dosage: 1 DF, QD
     Route: 048
     Dates: start: 20111028, end: 20111116
  18. NORVIR [Concomitant]
     Active Substance: RITONAVIR
     Indication: HIV INFECTION
     Route: 048
     Dates: start: 20111111, end: 20120129
  19. PREZISTANAIVE [Concomitant]
     Active Substance: DARUNAVIR
     Indication: HIV INFECTION
     Route: 048
     Dates: start: 20111111, end: 20120129
  20. ATOVAQUONE. [Concomitant]
     Active Substance: ATOVAQUONE
     Indication: ANTIFUNGAL PROPHYLAXIS
     Route: 048
     Dates: start: 20111122, end: 20120617

REACTIONS (5)
  - Cytomegalovirus chorioretinitis [Recovering/Resolving]
  - Hyperamylasaemia [Not Recovered/Not Resolved]
  - White blood cell count decreased [Recovered/Resolved]
  - Renal impairment [Recovered/Resolved]
  - Hyperuricaemia [Not Recovered/Not Resolved]

NARRATIVE: CASE EVENT DATE: 20111117
